FAERS Safety Report 21877567 (Version 1)
Quarter: 2023Q1

REPORT INFORMATION
  Report Type: Spontaneous
  Country: US (occurrence: US)
  Receive Date: 20230118
  Receipt Date: 20230118
  Transmission Date: 20230417
  Serious: No
  Sender: FDA-Public Use
  Company Number: US-SA-SAC20230116001147

PATIENT
  Age: 77 Year
  Sex: Female

DRUGS (7)
  1. DUPIXENT [Suspect]
     Active Substance: DUPILUMAB
     Indication: Dermatitis atopic
     Dosage: 1 DF, QOW
     Route: 058
     Dates: start: 20221216
  2. SELENIUM [Concomitant]
     Active Substance: SELENIUM
  3. VITAMIN B [Concomitant]
     Active Substance: VITAMIN B
  4. .ALPHA.-TOCOPHEROL [Concomitant]
     Active Substance: .ALPHA.-TOCOPHEROL
  5. MELATONIN [Concomitant]
     Active Substance: MELATONIN
  6. PRALUENT [Concomitant]
     Active Substance: ALIROCUMAB
  7. MAGNESIUM [Concomitant]
     Active Substance: MAGNESIUM

REACTIONS (3)
  - Sinusitis [Unknown]
  - Dermatitis atopic [Unknown]
  - Arthralgia [Unknown]
